FAERS Safety Report 4375967-0 (Version None)
Quarter: 2004Q2

REPORT INFORMATION
  Report Type: 
  Country: None (occurrence: None)
  Receive Date: 20040607
  Receipt Date: 20040525
  Transmission Date: 20050107
  Serious: Yes (Hospitalization)
  Sender: FDA-Public Use
  Company Number: 02100-JPN-04-0070

PATIENT
  Age: 78 Year
  Sex: Male

DRUGS (6)
  1. CILOSTAZOL [Suspect]
     Dosage: 100 MG
     Route: 048
  2. ETHYL ICOSAPENTATE [Suspect]
     Dosage: 1200 MG
     Route: 048
  3. MEXILETINE HYDROCHLORIDE [Concomitant]
  4. BEZAFIBRATE [Concomitant]
  5. ISOSORBIDE MONONITRATE [Concomitant]
  6. NICORANDIL [Concomitant]

REACTIONS (2)
  - ANAEMIA MACROCYTIC [None]
  - APLASIA PURE RED CELL [None]
